FAERS Safety Report 9322941 (Version 1)
Quarter: 2013Q2

REPORT INFORMATION
  Report Type: Spontaneous
  Country: US (occurrence: US)
  Receive Date: 20130603
  Receipt Date: 20130603
  Transmission Date: 20140414
  Serious: Yes (Other)
  Sender: FDA-Public Use
  Company Number: US-ROCHE-1230231

PATIENT
  Age: 57 Year
  Sex: Male

DRUGS (14)
  1. ROCEPHIN [Suspect]
     Indication: INFECTION
     Route: 065
     Dates: start: 201303
  2. REVLIMID [Suspect]
     Indication: PLASMA CELL MYELOMA
     Route: 048
     Dates: start: 201108
  3. MUCINEX [Concomitant]
     Route: 065
  4. VITAMIN E [Concomitant]
  5. FISH OIL [Concomitant]
  6. MIDODRINE [Concomitant]
     Route: 065
  7. PEPCID [Concomitant]
     Route: 065
  8. IMODIUM [Concomitant]
  9. PLAVIX [Concomitant]
     Route: 065
  10. ASPIRIN [Concomitant]
     Route: 065
  11. COLESTIPOL [Concomitant]
     Route: 065
  12. SINGULAIR [Concomitant]
     Route: 065
  13. ENTOCORT EC [Concomitant]
     Route: 065
  14. VANCOMYCIN [Concomitant]

REACTIONS (5)
  - Nail bed bleeding [Unknown]
  - Local swelling [Unknown]
  - Sinusitis [Unknown]
  - Ear infection [Unknown]
  - Malaise [Unknown]
